FAERS Safety Report 4342128-0 (Version None)
Quarter: 2004Q2

REPORT INFORMATION
  Report Type: 
  Country: None (occurrence: None)
  Receive Date: 20040409
  Receipt Date: 20030903
  Transmission Date: 20050107
  Serious: Yes (Hospitalization)
  Sender: FDA-Public Use
  Company Number: 03P-163-0232521-00

PATIENT
  Age: 42 Year
  Sex: Male
  Weight: 102.0593 kg

DRUGS (6)
  1. DEPAKOTE [Suspect]
     Indication: AGGRESSION
     Dosage: 1 IN 1 D, PER ORAL
     Route: 048
     Dates: start: 20000401, end: 20030801
  2. LEXAPRO [Concomitant]
  3. ALPRAZOLAM [Concomitant]
  4. TRAZODONE HCL [Concomitant]
  5. GABAPENTIN [Concomitant]
  6. METHYLPHENIDATE HCL [Concomitant]

REACTIONS (2)
  - AMMONIA INCREASED [None]
  - WEIGHT INCREASED [None]
